FAERS Safety Report 11299246 (Version 1)
Quarter: 2015Q3

REPORT INFORMATION
  Report Type: Spontaneous
  Country: US (occurrence: US)
  Receive Date: 20150722
  Receipt Date: 20150722
  Transmission Date: 20151125
  Serious: No
  Sender: FDA-Public Use
  Company Number: US-ELI_LILLY_AND_COMPANY-US201208007983

PATIENT
  Sex: Female
  Weight: 44.5 kg

DRUGS (3)
  1. EFFIENT [Suspect]
     Active Substance: PRASUGREL HYDROCHLORIDE
     Indication: STENT PLACEMENT
     Dosage: 10 MG, QD
     Dates: start: 20110611
  2. ASPIRIN. [Concomitant]
     Active Substance: ASPIRIN
     Dosage: 81 MG, UNKNOWN
  3. PRAVASTATIN [Concomitant]
     Active Substance: PRAVASTATIN\PRAVASTATIN SODIUM
     Dosage: 20 MG, UNKNOWN

REACTIONS (8)
  - Urticaria [Unknown]
  - Feeling abnormal [Unknown]
  - Blister [Unknown]
  - Oedema [Unknown]
  - Swelling [Unknown]
  - Off label use [Not Recovered/Not Resolved]
  - Pruritus [Unknown]
  - Feeling hot [Unknown]
